FAERS Safety Report 8299854-0 (Version None)
Quarter: 2012Q2

REPORT INFORMATION
  Report Type: 
  Country: None (occurrence: None)
  Receive Date: 20120419
  Receipt Date: 20120405
  Transmission Date: 20120825
  Serious: Yes (Death)
  Sender: FDA-Public Use
  Company Number: JP-BAXTER-2012BAX002376

PATIENT
  Sex: Male

DRUGS (1)
  1. ADVATE [Suspect]
     Dosage: 1000-2000 IU
     Route: 042

REACTIONS (1)
  - HEPATIC FAILURE [None]
